FAERS Safety Report 5026522-0 (Version None)
Quarter: 2006Q2

REPORT INFORMATION
  Report Type: 
  Country: None (occurrence: None)
  Receive Date: 20060613
  Receipt Date: 20060613
  Transmission Date: 20061013
  Serious: Yes (Life-Threatening, Hospitalization)
  Sender: FDA-Public Use
  Company Number: None

PATIENT
  Age: 52 Year
  Sex: Male
  Weight: 81.6475 kg

DRUGS (2)
  1. FLEET PHOSPHASODA [Suspect]
     Indication: DIAGNOSTIC PROCEDURE
     Dosage: UNIT      X2    PO
     Route: 048
     Dates: start: 20060609
  2. ZOMETA [Suspect]
     Indication: METASTASES TO BONE
     Dates: start: 20060606

REACTIONS (2)
  - HYPOCALCAEMIA [None]
  - TETANY [None]
